FAERS Safety Report 4743734-1 (Version None)
Quarter: 2005Q3

REPORT INFORMATION
  Report Type: 
  Country: None (occurrence: None)
  Receive Date: 20050812
  Receipt Date: 20050811
  Transmission Date: 20060218
  Serious: Yes (Other)
  Sender: FDA-Public Use
  Company Number: US-GLAXOSMITHKLINE-A0569819A

PATIENT
  Sex: Male

DRUGS (9)
  1. COREG [Suspect]
     Indication: ATRIAL FIBRILLATION
     Route: 048
  2. LISINOPRIL [Concomitant]
  3. DIGOXIN [Concomitant]
  4. ZIAGEN [Concomitant]
  5. VIREAD [Concomitant]
  6. KALETRA [Concomitant]
  7. NANDROLONE INJECTION [Concomitant]
  8. NORVASC [Concomitant]
  9. BOTOX [Concomitant]

REACTIONS (6)
  - ATRIAL FIBRILLATION [None]
  - DISEASE RECURRENCE [None]
  - DRUG INEFFECTIVE [None]
  - MUSCLE ATROPHY [None]
  - RECTAL PROLAPSE [None]
  - THERAPY NON-RESPONDER [None]
